FAERS Safety Report 8880064 (Version 1)
Quarter: 2012Q4

REPORT INFORMATION
  Report Type: 
  Country: BE (occurrence: BE)
  Receive Date: 20121101
  Receipt Date: 20121101
  Transmission Date: 20130627
  Serious: Yes (Hospitalization, Other)
  Sender: FDA-Public Use
  Company Number: BE-SHIRE-ALL1-2012-05204

PATIENT
  Age: 52 Year
  Sex: Female

DRUGS (1)
  1. MEZAVANT [Suspect]
     Indication: CROHN^S DISEASE
     Dosage: 1200 mg, 2x/day:bid
     Route: 048

REACTIONS (4)
  - Adverse event [Unknown]
  - Gastrointestinal disorder [Unknown]
  - Medication residue [Unknown]
  - Off label use [Unknown]
